FAERS Safety Report 8134008-X (Version None)
Quarter: 2012Q1

REPORT INFORMATION
  Report Type: 
  Country: None (occurrence: None)
  Receive Date: 20120213
  Receipt Date: 20120202
  Transmission Date: 20120608
  Serious: Yes (Hospitalization)
  Sender: FDA-Public Use
  Company Number: US-ASTRAZENECA-2012SE07169

PATIENT
  Sex: Female

DRUGS (3)
  1. ZANTAC [Concomitant]
  2. NEXIUM [Suspect]
     Indication: GASTROOESOPHAGEAL REFLUX DISEASE
     Route: 048
  3. NEXIUM [Suspect]
     Route: 048

REACTIONS (3)
  - POLYP [None]
  - OFF LABEL USE [None]
  - DIVERTICULITIS [None]
